FAERS Safety Report 23637572 (Version 1)
Quarter: 2024Q1

REPORT INFORMATION
  Report Type: Spontaneous
  Country: NZ (occurrence: None)
  Receive Date: 20240315
  Receipt Date: 20240315
  Transmission Date: 20240409
  Serious: Yes (Other)
  Sender: FDA-Public Use
  Company Number: NZ-PFIZER INC-PV202400032583

PATIENT
  Age: 79 Year
  Sex: Female

DRUGS (5)
  1. METHOTREXATE [Interacting]
     Active Substance: METHOTREXATE
     Indication: Product used for unknown indication
     Dosage: LOW DOSE
  2. COTRIMOXAZOLE [Interacting]
     Active Substance: SULFAMETHOXAZOLE\TRIMETHOPRIM
     Indication: Product used for unknown indication
  3. CEPHALEXIN [Concomitant]
     Active Substance: CEPHALEXIN
  4. CELECOXIB [Concomitant]
     Active Substance: CELECOXIB
  5. OMEPRAZOLE [Concomitant]
     Active Substance: OMEPRAZOLE

REACTIONS (5)
  - Pancytopenia [Unknown]
  - Drug interaction [Unknown]
  - Vomiting [Unknown]
  - Stomatitis [Unknown]
  - Toxicity to various agents [Unknown]
